FAERS Safety Report 9921176 (Version 1)
Quarter: 2014Q1

REPORT INFORMATION
  Report Type: Report from Study
  Country: US (occurrence: US)
  Receive Date: 20140225
  Receipt Date: 20140225
  Transmission Date: 20141002
  Serious: Yes (Hospitalization)
  Sender: FDA-Public Use
  Company Number: US-ROCHE-1346676

PATIENT
  Age: 64 Year
  Sex: Female

DRUGS (20)
  1. LUCENTIS [Suspect]
     Indication: DIABETIC RETINAL OEDEMA
     Dosage: OU
     Route: 050
     Dates: start: 20110902
  2. LUCENTIS [Suspect]
     Indication: DIABETIC RETINOPATHY
  3. AVASTIN [Suspect]
     Indication: PRODUCT USED FOR UNKNOWN INDICATION
     Route: 065
     Dates: start: 20110922
  4. DECADRON [Concomitant]
     Indication: DIABETIC RETINAL OEDEMA
     Dosage: OU
     Route: 065
  5. FUROSEMIDE [Concomitant]
     Route: 065
  6. ASA [Concomitant]
     Route: 065
  7. PROTONIX (UNITED STATES) [Concomitant]
  8. SPIRONOLACTONE [Concomitant]
  9. LANTUS [Concomitant]
  10. HUMALOG [Concomitant]
  11. METOPROLOL TARTRATE [Concomitant]
  12. PROPARACAINE [Concomitant]
     Route: 065
  13. AMOXICILLIN [Concomitant]
  14. HYDROXYZINE HCL [Concomitant]
  15. LIDOCAINE HYDROCHLORIDE [Concomitant]
     Route: 065
  16. LIVALO [Concomitant]
  17. ZEMPLAR [Concomitant]
  18. SYSTANE [Concomitant]
     Dosage: OU QPM
     Route: 065
  19. SSD CREAM [Concomitant]
  20. DIOVAN [Concomitant]

REACTIONS (14)
  - Anaemia [Unknown]
  - Tenderness [Unknown]
  - Intraocular lens implant [Unknown]
  - Vitreous detachment [Unknown]
  - Macular hole [Unknown]
  - Vision blurred [Unknown]
  - Herpes zoster [Unknown]
  - Cystitis [Unknown]
  - Deafness [Unknown]
  - Photopsia [Unknown]
  - Fatigue [Unknown]
  - Visual impairment [Unknown]
  - Epistaxis [Unknown]
  - Off label use [Unknown]
